FAERS Safety Report 8954422 (Version 1)
Quarter: 2012Q4

REPORT INFORMATION
  Report Type: 
  Country: CA (occurrence: CA)
  Receive Date: 20121207
  Receipt Date: 20121207
  Transmission Date: 20130627
  Serious: Yes (Hospitalization)
  Sender: FDA-Public Use
  Company Number: CA-B.I. PHARMACEUTICALS,INC./RIDGEFIELD-2012-CN-02475CN

PATIENT
  Age: 75 Year
  Sex: Male
  Weight: 75 kg

DRUGS (12)
  1. PRADAX [Suspect]
     Dosage: 220 mg
     Route: 048
  2. ALLOPURINOL [Concomitant]
  3. CALCIUM [Concomitant]
  4. CLOTRIMADERM CREAM 1% [Concomitant]
  5. DILAUDID [Concomitant]
  6. K-DUR [Concomitant]
  7. NORVASC [Concomitant]
  8. OXAZEPAM [Concomitant]
  9. PANTOLOC [Concomitant]
  10. PREDNISONE [Concomitant]
  11. TYLENOL [Concomitant]
  12. VITAMIN D [Concomitant]

REACTIONS (5)
  - Blood pressure decreased [Recovered/Resolved]
  - Haematoma [Recovered/Resolved]
  - Haemoglobin decreased [Recovered/Resolved]
  - International normalised ratio increased [Recovered/Resolved]
  - Pain in extremity [Recovered/Resolved]
